FAERS Safety Report 16384561 (Version 1)
Quarter: 2019Q3

REPORT INFORMATION
  Report Type: Spontaneous
  Country: US (occurrence: US)
  Receive Date: 20190531
  Receipt Date: 20190531
  Transmission Date: 20191004
  Serious: Yes (Other)
  Sender: FDA-Public Use
  Company Number: None

PATIENT
  Age: 49 Year
  Sex: Female
  Weight: 55.71 kg

DRUGS (9)
  1. MVI ADULT [Concomitant]
  2. SYNTHROID [Concomitant]
     Active Substance: LEVOTHYROXINE SODIUM
  3. TYKERB [Suspect]
     Active Substance: LAPATINIB DITOSYLATE
     Indication: BREAST CANCER FEMALE
     Route: 048
     Dates: start: 20181105, end: 20190510
  4. VITAMIN D3 [Concomitant]
     Active Substance: CHOLECALCIFEROL
  5. IRON [Concomitant]
     Active Substance: IRON
  6. KEPPRA [Concomitant]
     Active Substance: LEVETIRACETAM
  7. ATIVAN [Concomitant]
     Active Substance: LORAZEPAM
  8. CALCIUM 600 [Concomitant]
     Active Substance: CALCIUM
  9. OMEGA 3 500 [Concomitant]

REACTIONS (1)
  - Liver function test increased [None]
